FAERS Safety Report 6839505-2 (Version None)
Quarter: 2010Q3

REPORT INFORMATION
  Report Type: 
  Country: None (occurrence: None)
  Receive Date: 20100714
  Receipt Date: 20100114
  Transmission Date: 20110219
  Serious: No
  Sender: FDA-Public Use
  Company Number: A0813162A

PATIENT
  Age: 17 Year
  Sex: Female

DRUGS (3)
  1. FLOVENT [Suspect]
     Indication: ASTHMA
     Dosage: 2PUFF TWICE PER DAY
     Route: 055
     Dates: start: 20090901
  2. SINGULAIR [Concomitant]
  3. ALBUTEROL [Concomitant]

REACTIONS (3)
  - DRUG INEFFECTIVE [None]
  - NASOPHARYNGITIS [None]
  - PRODUCT QUALITY ISSUE [None]
